FAERS Safety Report 17593197 (Version 2)
Quarter: 2020Q2

REPORT INFORMATION
  Report Type: Report from Study
  Country: JP (occurrence: JP)
  Receive Date: 20200327
  Receipt Date: 20200422
  Transmission Date: 20200713
  Serious: Yes (Hospitalization)
  Sender: FDA-Public Use
  Company Number: JP-JNJFOC-20200328413

PATIENT
  Age: 23 Year
  Sex: Female
  Weight: 57.3 kg

DRUGS (30)
  1. PREDONINE [Suspect]
     Active Substance: PREDNISOLONE
     Indication: PRODUCT USED FOR UNKNOWN INDICATION
     Route: 048
     Dates: start: 20180331
  2. DEXTROMETHORPHAN HYDROBROMIDE. [Concomitant]
     Active Substance: DEXTROMETHORPHAN HYDROBROMIDE
     Indication: SINUSITIS
     Route: 048
     Dates: start: 20200208, end: 20200215
  3. AZITHROMYCIN ANHYDROUS. [Concomitant]
     Active Substance: AZITHROMYCIN ANHYDROUS
     Indication: RHINITIS
     Route: 048
     Dates: start: 20191209, end: 20191211
  4. ACELIO [Concomitant]
     Active Substance: ACETAMINOPHEN
     Indication: MUSCLE CONTUSION
     Route: 042
     Dates: start: 20200312, end: 20200312
  5. AMOXICILLIN TRIHYDRATE [Concomitant]
     Active Substance: AMOXICILLIN
     Indication: SINUSITIS
     Route: 048
     Dates: start: 20200106, end: 20200112
  6. MONTELUKAST [Concomitant]
     Active Substance: MONTELUKAST SODIUM
     Route: 048
     Dates: start: 20191209, end: 20191215
  7. INAVIR                             /07146202/ [Concomitant]
     Active Substance: LANINAMIVIR
     Indication: INFLUENZA
     Dates: start: 20191227, end: 20191227
  8. PLACEBO [Suspect]
     Active Substance: UNSPECIFIED INGREDIENT
     Dosage: WEEK 8 SUBCUTANEOUS
     Route: 058
     Dates: start: 20200206
  9. FERRIC SODIUM CITRATE [Concomitant]
     Active Substance: FERRIC SODIUM CITRATE
     Indication: IRON DEFICIENCY ANAEMIA
     Dosage: EVERY OTHER DAY
     Route: 048
     Dates: start: 20190731, end: 20200315
  10. CALCIUM L-ASPARTATE [Concomitant]
     Indication: OSTEOPOROSIS PROPHYLAXIS
     Route: 048
     Dates: start: 20190331
  11. PLAQUENIL                          /00072602/ [Concomitant]
     Active Substance: HYDROXYCHLOROQUINE DIPHOSPHATE
     Route: 048
     Dates: start: 20190329
  12. LEVOFLOXACIN HEMIHYDRATE [Concomitant]
     Active Substance: LEVOFLOXACIN
     Indication: GASTROENTERITIS
     Route: 048
     Dates: start: 20200122, end: 20200126
  13. LEVOFLOXACIN. [Concomitant]
     Active Substance: LEVOFLOXACIN
     Indication: CONJUNCTIVITIS ALLERGIC
     Dosage: 2 DROPS
     Route: 047
     Dates: start: 20191216, end: 20191220
  14. AZITHROMYCIN ANHYDROUS. [Concomitant]
     Active Substance: AZITHROMYCIN ANHYDROUS
     Indication: SINUSITIS
     Route: 048
     Dates: start: 20200225, end: 20200228
  15. VOLTAREN [Concomitant]
     Active Substance: DICLOFENAC SODIUM
     Dates: start: 20200311, end: 20200311
  16. MIYA-BM [Concomitant]
     Active Substance: CLOSTRIDIUM BUTYRICUM SPORES STRAIN M-55
     Indication: GASTROENTERITIS
     Dosage: 1 TABLET
     Route: 048
     Dates: start: 20200122, end: 20200126
  17. MONTELUKAST [Concomitant]
     Active Substance: MONTELUKAST SODIUM
     Indication: RHINITIS
     Route: 048
     Dates: start: 20200106, end: 20200128
  18. GENINAX [Concomitant]
     Active Substance: GARENOXACIN MESYLATE
     Indication: SINUSITIS
     Route: 048
     Dates: start: 20200208, end: 20200215
  19. CALONAL [Concomitant]
     Active Substance: ACETAMINOPHEN
     Dosage: 6 TABLETS 3 TIMES DAILY AFTER EACH MEAL
     Route: 065
  20. DEXTROMETHORPHAN HYDROBROMIDE. [Concomitant]
     Active Substance: DEXTROMETHORPHAN HYDROBROMIDE
     Indication: INFLUENZA
     Route: 048
     Dates: start: 20191227, end: 20191230
  21. PLAQUENIL                          /00072602/ [Concomitant]
     Active Substance: HYDROXYCHLOROQUINE DIPHOSPHATE
     Route: 048
     Dates: start: 20190330
  22. EDIROL [Concomitant]
     Active Substance: ELDECALCITOL
     Indication: OSTEOPOROSIS PROPHYLAXIS
     Dosage: 0.75 MCG
     Route: 048
     Dates: start: 20190331
  23. CARBOCISTEINE [Concomitant]
     Active Substance: CARBOCYSTEINE
     Indication: SINUSITIS
     Route: 048
     Dates: start: 20200208, end: 20200303
  24. CARBOCISTEINE [Concomitant]
     Active Substance: CARBOCYSTEINE
     Indication: RHINITIS
     Route: 048
     Dates: start: 20200106, end: 20200128
  25. PLACEBO [Suspect]
     Active Substance: UNSPECIFIED INGREDIENT
     Indication: SYSTEMIC LUPUS ERYTHEMATOSUS
     Dosage: WEEK 0 IV
     Route: 042
     Dates: start: 20191216, end: 20191216
  26. NEXIUM [Concomitant]
     Active Substance: ESOMEPRAZOLE MAGNESIUM
     Indication: GASTROINTESTINAL DISORDER THERAPY
     Route: 048
     Dates: start: 20180331
  27. CARBOCISTEINE [Concomitant]
     Active Substance: CARBOCYSTEINE
     Route: 048
     Dates: start: 20191209, end: 20191215
  28. MONTELUKAST [Concomitant]
     Active Substance: MONTELUKAST SODIUM
     Indication: SINUSITIS
     Route: 048
     Dates: start: 20200208, end: 20200303
  29. ZEPELIN                            /02132301/ [Concomitant]
     Indication: PROPHYLAXIS
     Dosage: OPHTHALMIC SOLUTION 0.1% 5 MG 5 ML 1 BOTTLE, FOR BOTH EYES 4 TIMES DAILY, IN THE MORNING, DAYTIME, E
     Route: 047
     Dates: start: 20200316
  30. FLUOROMETHOLONE. [Concomitant]
     Active Substance: FLUOROMETHOLONE
     Indication: CONJUNCTIVITIS ALLERGIC
     Dosage: 2 DROPS
     Route: 047
     Dates: start: 20191216, end: 20191220

REACTIONS (1)
  - Viral infection [Recovered/Resolved]

NARRATIVE: CASE EVENT DATE: 20200313
